FAERS Safety Report 7368944-9 (Version None)
Quarter: 2011Q1

REPORT INFORMATION
  Report Type: 
  Country: None (occurrence: None)
  Receive Date: 20110323
  Receipt Date: 20110316
  Transmission Date: 20110831
  Serious: Yes (Other)
  Sender: FDA-Public Use
  Company Number: US-US-EMD SERONO, INC.-7042007

PATIENT
  Sex: Male
  Weight: 3 kg

DRUGS (4)
  1. REBIF [Suspect]
     Route: 064
  2. OXYCODONE [Concomitant]
     Route: 064
  3. LYRICA [Concomitant]
     Route: 064
  4. SYNTHROID [Concomitant]
     Route: 064

REACTIONS (3)
  - DRUG EXPOSURE DURING PREGNANCY [None]
  - LUNG DISORDER [None]
  - PREMATURE BABY [None]
